FAERS Safety Report 21501965 (Version 2)
Quarter: 2022Q4

REPORT INFORMATION
  Report Type: Spontaneous
  Country: JP (occurrence: JP)
  Receive Date: 20221025
  Receipt Date: 20221027
  Transmission Date: 20230113
  Serious: Yes (Other)
  Sender: FDA-Public Use
  Company Number: JP-UCBSA-2022061696

PATIENT

DRUGS (1)
  1. LEVETIRACETAM [Suspect]
     Active Substance: LEVETIRACETAM
     Indication: Partial seizures
     Dosage: UNK
     Route: 048

REACTIONS (5)
  - Epilepsy [Unknown]
  - Blood creatinine increased [Unknown]
  - Agitation [Unknown]
  - Somnolence [Unknown]
  - Drug ineffective [Unknown]
